FAERS Safety Report 8549393-4 (Version None)
Quarter: 2012Q3

REPORT INFORMATION
  Report Type: 
  Country: None (occurrence: None)
  Receive Date: 20120730
  Receipt Date: 20120725
  Transmission Date: 20120928
  Serious: Yes (Hospitalization)
  Sender: FDA-Public Use
  Company Number: AT-ROCHE-1084858

PATIENT
  Age: 64 Year
  Sex: Female
  Weight: 66 kg

DRUGS (9)
  1. PANTOPRAZOLE SODIUM [Concomitant]
  2. METOPROLOL TARTRATE [Concomitant]
  3. INSULINE HUMAINE [Concomitant]
  4. CRESTOR [Concomitant]
  5. LUCENTIS [Suspect]
     Dates: start: 20120127
  6. LASIX [Concomitant]
  7. ACECOMB [Concomitant]
  8. LUCENTIS [Suspect]
     Indication: DIABETIC RETINOPATHY
     Route: 050
     Dates: start: 20111109
  9. EFFIENT [Concomitant]

REACTIONS (1)
  - NEPHROTIC SYNDROME [None]
